FAERS Safety Report 5934067-6 (Version None)
Quarter: 2008Q4

REPORT INFORMATION
  Report Type: 
  Country: None (occurrence: None)
  Receive Date: 20081029
  Receipt Date: 20081023
  Transmission Date: 20090506
  Serious: Yes (Other)
  Sender: FDA-Public Use
  Company Number: ES-BRISTOL-MYERS SQUIBB COMPANY-14381909

PATIENT

DRUGS (3)
  1. ABILIFY [Suspect]
  2. RIVOTRIL [Concomitant]
  3. RISPERIDONE [Concomitant]

REACTIONS (1)
  - GLAUCOMA [None]
